FAERS Safety Report 19951054 (Version 2)
Quarter: 2021Q4

REPORT INFORMATION
  Report Type: Spontaneous
  Country: CA (occurrence: CA)
  Receive Date: 20211013
  Receipt Date: 20211116
  Transmission Date: 20220303
  Serious: Yes (Hospitalization, Other)
  Sender: FDA-Public Use
  Company Number: CA-BAYER-2021A222214

PATIENT
  Age: 35 Year
  Sex: Male

DRUGS (2)
  1. POLYETHYLENE GLYCOL 3350 [Suspect]
     Active Substance: POLYETHYLENE GLYCOL 3350
     Indication: Haemorrhoid operation
     Dosage: 17 G
     Dates: start: 20210928, end: 20210928
  2. LYRICA [Concomitant]
     Active Substance: PREGABALIN
     Indication: Back disorder
     Dosage: UNK
     Dates: start: 2021

REACTIONS (3)
  - Anaphylactic reaction [Recovered/Resolved]
  - Keratitis [Recovered/Resolved]
  - Off label use [None]

NARRATIVE: CASE EVENT DATE: 20210928
